FAERS Safety Report 8801797 (Version 1)
Quarter: 2012Q4

REPORT INFORMATION
  Report Type: 
  Country: US (occurrence: US)
  Receive Date: 20120921
  Receipt Date: 20120921
  Transmission Date: 20130627
  Serious: No
  Sender: FDA-Public Use
  Company Number: US-PFIZER INC-2012233529

PATIENT

DRUGS (2)
  1. PRISTIQ [Suspect]
     Dosage: 50 mg
  2. PRISTIQ [Suspect]
     Dosage: 100 mg

REACTIONS (1)
  - Drug intolerance [Unknown]
